FAERS Safety Report 23377669 (Version 3)
Quarter: 2024Q1

REPORT INFORMATION
  Report Type: Report from Study
  Country: BR (occurrence: BR)
  Receive Date: 20240108
  Receipt Date: 20240112
  Transmission Date: 20240410
  Serious: Yes (Disabling)
  Sender: FDA-Public Use
  Company Number: BR-ABBVIE-5574401

PATIENT
  Age: 26 Year
  Sex: Female
  Weight: 101 kg

DRUGS (8)
  1. SKYRIZI [Suspect]
     Active Substance: RISANKIZUMAB-RZAA
     Indication: Psoriasis
     Dosage: FORM STRENGTH: 75MG
     Route: 058
     Dates: start: 20231211
  2. RISPERIDONE [Concomitant]
     Active Substance: RISPERIDONE
     Indication: Depression
     Dosage: 4 MILLIGRAM
     Dates: start: 202301
  3. LITHIUM CARBONATE [Concomitant]
     Active Substance: LITHIUM CARBONATE
     Indication: Depression
     Dosage: 60 MILLIGRAM
     Dates: start: 202301
  4. SERTRALINE [Concomitant]
     Active Substance: SERTRALINE HYDROCHLORIDE
     Indication: Depression
     Dosage: 100 MILLIGRAM
     Dates: start: 202301
  5. PROMETHAZINE [Concomitant]
     Active Substance: PROMETHAZINE HYDROCHLORIDE
     Indication: Depression
     Dosage: 25 MILLIGRAM
     Dates: start: 202301
  6. PURAN [Concomitant]
     Active Substance: LEVOTHYROXINE SODIUM
     Indication: Thyroid disorder
     Dosage: 25 MILLIGRAM
     Dates: start: 202307
  7. GLIFAGE [Concomitant]
     Active Substance: METFORMIN HYDROCHLORIDE
     Indication: Diabetes mellitus
     Dosage: 2000 MILLIGRAM
     Dates: start: 202210
  8. CHLORPROMAZINE [Concomitant]
     Active Substance: CHLORPROMAZINE
     Indication: Depression
     Dosage: 50 MILLIGRAM
     Dates: start: 202301

REACTIONS (6)
  - Hypoacusis [Unknown]
  - Psoriasis [Recovering/Resolving]
  - Therapeutic product effect incomplete [Unknown]
  - Scab [Recovering/Resolving]
  - Skin discolouration [Recovering/Resolving]
  - Product administered at inappropriate site [Recovered/Resolved]

NARRATIVE: CASE EVENT DATE: 20231201
